FAERS Safety Report 6836579-X (Version None)
Quarter: 2010Q3

REPORT INFORMATION
  Report Type: 
  Country: None (occurrence: None)
  Receive Date: 20100708
  Receipt Date: 20100629
  Transmission Date: 20110219
  Serious: Yes (Other)
  Sender: FDA-Public Use
  Company Number: 1000014800

PATIENT
  Age: 85 Year
  Sex: Female

DRUGS (2)
  1. NAMENDA [Suspect]
  2. ARICEPT [Concomitant]

REACTIONS (2)
  - BONE MARROW DISORDER [None]
  - EYE SWELLING [None]
